FAERS Safety Report 17747940 (Version 6)
Quarter: 2021Q4

REPORT INFORMATION
  Report Type: Spontaneous
  Country: US (occurrence: US)
  Receive Date: 20200505
  Receipt Date: 20211208
  Transmission Date: 20220303
  Serious: Yes (Hospitalization, Other)
  Sender: FDA-Public Use
  Company Number: US-GILEAD-2020-0462872

PATIENT
  Age: 59 Year
  Sex: Female
  Weight: 93.9 kg

DRUGS (17)
  1. ATRIPLA [Suspect]
     Active Substance: EFAVIRENZ\EMTRICITABINE\TENOFOVIR DISOPROXIL FUMARATE
     Indication: HIV infection
     Dosage: UNK
     Route: 048
     Dates: start: 200601, end: 201804
  2. ATRIPLA [Suspect]
     Active Substance: EFAVIRENZ\EMTRICITABINE\TENOFOVIR DISOPROXIL FUMARATE
     Dosage: UNK
     Route: 048
     Dates: start: 20100113, end: 20150110
  3. ATRIPLA [Suspect]
     Active Substance: EFAVIRENZ\EMTRICITABINE\TENOFOVIR DISOPROXIL FUMARATE
     Dosage: UNK
     Route: 048
     Dates: start: 19960113
  4. ATRIPLA [Suspect]
     Active Substance: EFAVIRENZ\EMTRICITABINE\TENOFOVIR DISOPROXIL FUMARATE
     Dosage: UNK
     Route: 048
     Dates: start: 20080122, end: 20150220
  5. ATRIPLA [Suspect]
     Active Substance: EFAVIRENZ\EMTRICITABINE\TENOFOVIR DISOPROXIL FUMARATE
     Dosage: UNK
     Route: 048
     Dates: start: 20090709, end: 20150220
  6. TRUVADA [Suspect]
     Active Substance: EMTRICITABINE\TENOFOVIR DISOPROXIL FUMARATE
     Indication: HIV infection
     Dosage: UNK
     Route: 065
     Dates: start: 20090509, end: 20090709
  7. EPZICOM [Concomitant]
     Active Substance: ABACAVIR SULFATE\LAMIVUDINE
  8. TIVICAY [Concomitant]
     Active Substance: DOLUTEGRAVIR SODIUM
  9. TRIUMEQ [Concomitant]
     Active Substance: ABACAVIR SULFATE\DOLUTEGRAVIR SODIUM\LAMIVUDINE
  10. SUSTIVA [Concomitant]
     Active Substance: EFAVIRENZ
  11. ACETAMINOPHEN [Concomitant]
     Active Substance: ACETAMINOPHEN
  12. ALENDRONATE [Concomitant]
     Active Substance: ALENDRONATE SODIUM
  13. ATORVASTATIN [Concomitant]
     Active Substance: ATORVASTATIN
  14. FAMOTIDINE [Concomitant]
     Active Substance: FAMOTIDINE
  15. LISINOPRIL [Concomitant]
     Active Substance: LISINOPRIL
  16. DIOVAN [Concomitant]
     Active Substance: VALSARTAN
  17. IBUPROFEN [Concomitant]
     Active Substance: IBUPROFEN

REACTIONS (20)
  - Chronic kidney disease [Not Recovered/Not Resolved]
  - Osteoporosis [Not Recovered/Not Resolved]
  - Osteoporosis [Unknown]
  - Multiple fractures [Not Recovered/Not Resolved]
  - Lower limb fracture [Unknown]
  - Ankle fracture [Unknown]
  - Abdominal pain upper [Unknown]
  - Hypertension [Unknown]
  - Bone density decreased [Unknown]
  - Pain [Unknown]
  - Emotional distress [Unknown]
  - Back pain [Unknown]
  - Bone marrow oedema [Unknown]
  - Fibula fracture [Unknown]
  - Tendonitis [Unknown]
  - Posterior tibial tendon dysfunction [Unknown]
  - Gait disturbance [Unknown]
  - Mobility decreased [Unknown]
  - Fall [Unknown]
  - Ankle impingement [Unknown]

NARRATIVE: CASE EVENT DATE: 20100101
